FAERS Safety Report 9831975 (Version 2)
Quarter: 2014Q1

REPORT INFORMATION
  Report Type: Spontaneous
  Country: DE (occurrence: DE)
  Receive Date: 20140121
  Receipt Date: 20140121
  Transmission Date: 20141002
  Serious: Yes (Other)
  Sender: FDA-Public Use
  Company Number: PHHY2013DE146399

PATIENT
  Sex: Male

DRUGS (2)
  1. TEGRETOL [Suspect]
     Dosage: 1200 MG DAILY
     Dates: start: 1991
  2. CANDESARTAN [Concomitant]
     Dosage: 16 MG

REACTIONS (2)
  - Osteoporosis [Unknown]
  - Vitamin D decreased [Unknown]
